FAERS Safety Report 18748446 (Version 1)
Quarter: 2021Q1

REPORT INFORMATION
  Report Type: Spontaneous
  Country: US (occurrence: US)
  Receive Date: 20210116
  Receipt Date: 20210116
  Transmission Date: 20210419
  Serious: No
  Sender: FDA-Public Use
  Company Number: US-MACLEODS PHARMACEUTICALS US LTD-MAC2021029747

PATIENT

DRUGS (1)
  1. PRAMIPEXOLE DIHYDROCHLORIDE 4.5 MG EXTENDED RELEASE TABLET [Suspect]
     Active Substance: PRAMIPEXOLE DIHYDROCHLORIDE
     Indication: RESTLESS LEGS SYNDROME
     Dosage: 4.5 MILLIGRAM, QD
     Route: 048
     Dates: end: 202009

REACTIONS (2)
  - Product dose omission issue [Unknown]
  - Product availability issue [Unknown]
